FAERS Safety Report 20799687 (Version 1)
Quarter: 2022Q2

REPORT INFORMATION
  Report Type: Spontaneous
  Country: ES (occurrence: ES)
  Receive Date: 20220509
  Receipt Date: 20220509
  Transmission Date: 20220721
  Serious: Yes (Hospitalization, Other)
  Sender: FDA-Public Use
  Company Number: ES-AEMPS-1169250

PATIENT
  Age: 85 Year
  Sex: Male

DRUGS (8)
  1. METOPROLOL [Suspect]
     Active Substance: METOPROLOL
     Indication: Hypertension
     Dosage: UNK (50.0 MG C/12 H)
     Route: 048
     Dates: start: 20080610, end: 20201130
  2. HYDROCHLOROTHIAZIDE\TELMISARTAN [Suspect]
     Active Substance: HYDROCHLOROTHIAZIDE\TELMISARTAN
     Indication: Hypertension
     Dosage: UNK (1.0 COMP C/24 H) (28 TABLETS)
     Route: 048
     Dates: start: 20160407, end: 20201130
  3. ELIGARD [Concomitant]
     Active Substance: LEUPROLIDE ACETATE
     Indication: Prostate cancer
     Dosage: 45 MILLIGRAM
     Route: 058
     Dates: start: 20090520
  4. ATORVASTATIN [Concomitant]
     Active Substance: ATORVASTATIN
     Indication: Hypercholesterolaemia
     Dosage: 20 MILLIGRAM (CE) (28 TABLETS)
     Route: 048
     Dates: start: 20190425
  5. BUDESONIDE\FORMOTEROL [Concomitant]
     Active Substance: BUDESONIDE\FORMOTEROL
     Indication: Bronchitis
     Dosage: UNK (1.0 PUFF C/12 H)
     Route: 050
     Dates: start: 20150423
  6. LEVOTHYROXINE SODIUM [Concomitant]
     Active Substance: LEVOTHYROXINE SODIUM
     Indication: Hypothyroidism
     Dosage: UNK (100.0 MCG A-DE) (100 TABLETS)
     Route: 048
     Dates: start: 20101118
  7. GLYCOPYRROLATE [Concomitant]
     Active Substance: GLYCOPYRROLATE
     Indication: Bronchitis
     Dosage: UNK (44.0 MCG C/24 H)
     Route: 050
     Dates: start: 20141212
  8. OMEPRAZOLE STADA [Concomitant]
     Indication: Gastritis
     Dosage: UNK (20.0 MG A-DE) (28 CAPSULES)
     Route: 048
     Dates: start: 20090707

REACTIONS (1)
  - Syncope [Recovered/Resolved]

NARRATIVE: CASE EVENT DATE: 20201130
